FAERS Safety Report 8403004 (Version 3)
Quarter: 2015Q4

REPORT INFORMATION
  Report Type: Spontaneous
  Country: JP (occurrence: JP)
  Receive Date: 20120213
  Receipt Date: 20151029
  Transmission Date: 20160305
  Serious: Yes (Other)
  Sender: FDA-Public Use
  Company Number: JP-GLAXOSMITHKLINE-B0780710A

PATIENT
  Age: 68 Year
  Sex: Female

DRUGS (5)
  1. ZOPICOOL [Concomitant]
     Active Substance: ZOPICLONE
     Dosage: UNK
     Route: 048
     Dates: end: 20120207
  2. LAMOTRIGINE. [Suspect]
     Active Substance: LAMOTRIGINE
     Indication: BIPOLAR DISORDER
     Dosage: 100 MG, QD
     Route: 048
     Dates: start: 201112, end: 20120207
  3. LIMAS [Suspect]
     Active Substance: LITHIUM CARBONATE
     Dosage: UNK
     Route: 048
     Dates: start: 201110, end: 20120201
  4. SEROQUEL [Concomitant]
     Active Substance: QUETIAPINE FUMARATE
     Dosage: UNK
     Route: 048
     Dates: end: 20120207
  5. ZYPREXA [Concomitant]
     Active Substance: OLANZAPINE
     Dosage: UNK, QD
     Route: 048

REACTIONS (3)
  - Anaemia [Unknown]
  - Oedema peripheral [Unknown]
  - Renal disorder [Recovering/Resolving]

NARRATIVE: CASE EVENT DATE: 201201
